FAERS Safety Report 5206537-X (Version None)
Quarter: 2007Q1

REPORT INFORMATION
  Report Type: 
  Country: None (occurrence: None)
  Receive Date: 20070109
  Receipt Date: 20061228
  Transmission Date: 20070707
  Serious: Yes (Other)
  Sender: FDA-Public Use
  Company Number: SPVI-2006-02315

PATIENT
  Age: 52 Year
  Sex: Male
  Weight: 88.4 kg

DRUGS (6)
  1. ADDERALL 10 [Suspect]
     Indication: ATTENTION DEFICIT/HYPERACTIVITY DISORDER
     Dosage: 70 MG, 1X/DAY, QD, ORAL, SEE IMAGE
     Route: 048
     Dates: start: 20050301, end: 20060701
  2. ADDERALL 10 [Suspect]
     Indication: ATTENTION DEFICIT/HYPERACTIVITY DISORDER
     Dosage: 70 MG, 1X/DAY, QD, ORAL, SEE IMAGE
     Route: 048
     Dates: start: 20060801, end: 20060801
  3. ADDERALL 10 [Suspect]
     Indication: ATTENTION DEFICIT/HYPERACTIVITY DISORDER
     Dosage: 70 MG, 1X/DAY, QD, ORAL, SEE IMAGE
     Route: 048
     Dates: start: 20060801, end: 20061028
  4. BUSPAR [Concomitant]
  5. PROZAC [Concomitant]
  6. MIRAPEX [Concomitant]

REACTIONS (13)
  - AGITATION [None]
  - AMNESIA [None]
  - BRAIN SCAN ABNORMAL [None]
  - DRUG WITHDRAWAL SYNDROME [None]
  - EUPHORIC MOOD [None]
  - HYPERHIDROSIS [None]
  - INSOMNIA [None]
  - LOGORRHOEA [None]
  - OBSESSIVE THOUGHTS [None]
  - PRESCRIBED OVERDOSE [None]
  - TIC [None]
  - TREMOR [None]
  - VOMITING [None]
